FAERS Safety Report 4566144-9 (Version None)
Quarter: 2005Q1

REPORT INFORMATION
  Report Type: 
  Country: None (occurrence: None)
  Receive Date: 20050110
  Receipt Date: 20050110
  Transmission Date: 20050727
  Serious: No
  Sender: FDA-Public Use
  Company Number: None

PATIENT
  Sex: Female
  Weight: 88.905 kg

DRUGS (3)
  1. ISOSORBIDE (GENERIC) [Suspect]
     Dosage: 10 MG 3X DAILY
     Dates: start: 20030101, end: 20040101
  2. FUROSEMIDE [Suspect]
     Dosage: 120 MG
  3. VERAPAMIL [Suspect]
     Dosage: 80  PM

REACTIONS (1)
  - DRUG INEFFECTIVE [None]
